FAERS Safety Report 9351724 (Version 2)
Quarter: 2013Q2

REPORT INFORMATION
  Report Type: Spontaneous
  Country: US (occurrence: US)
  Receive Date: 20130617
  Receipt Date: 20130620
  Transmission Date: 20140414
  Serious: Yes (Other)
  Sender: FDA-Public Use
  Company Number: US-PFIZER INC-2013181180

PATIENT
  Age: 20 Year
  Sex: Male
  Weight: 68.03 kg

DRUGS (3)
  1. GABAPENTIN [Suspect]
     Indication: IMPAIRED GASTRIC EMPTYING
     Dosage: 800 MG, 3X/DAY
     Dates: start: 2012
  2. LYRICA [Suspect]
     Indication: IMPAIRED GASTRIC EMPTYING
     Dosage: UNK
     Dates: start: 2013
  3. DRONABINOL [Concomitant]
     Indication: APPETITE DISORDER
     Dosage: 10 MG, 3X/DAY

REACTIONS (2)
  - Off label use [Unknown]
  - Impaired gastric emptying [Not Recovered/Not Resolved]
